FAERS Safety Report 5965221-5 (Version None)
Quarter: 2008Q4

REPORT INFORMATION
  Report Type: 
  Country: None (occurrence: None)
  Receive Date: 20081119
  Receipt Date: 20080704
  Transmission Date: 20090506
  Serious: Yes (Other)
  Sender: FDA-Public Use
  Company Number: 001#1#2008-00423

PATIENT
  Age: 66 Year
  Sex: Male

DRUGS (1)
  1. NEUPRO [Suspect]
     Dosage: 8 MG/24H (8 MG/24H 1 IN 1 DAY(S)) TRANSDERMAL
     Route: 062

REACTIONS (8)
  - APPLICATION SITE IRRITATION [None]
  - BACK PAIN [None]
  - BALANCE DISORDER [None]
  - BURNS SECOND DEGREE [None]
  - ERYTHEMA [None]
  - EXCORIATION [None]
  - OEDEMA PERIPHERAL [None]
  - VERTIGO [None]
